FAERS Safety Report 7932174-X (Version None)
Quarter: 2011Q4

REPORT INFORMATION
  Report Type: 
  Country: None (occurrence: None)
  Receive Date: 20111121
  Receipt Date: 20111116
  Transmission Date: 20120403
  Serious: Yes (Life-Threatening)
  Sender: FDA-Public Use
  Company Number: US-ASTRAZENECA-2011SE69525

PATIENT
  Age: 2 Day
  Sex: Female
  Weight: 2.5 kg

DRUGS (2)
  1. LIDOCAINE [Suspect]
     Indication: TOOTH EXTRACTION
  2. LIDOCAINE [Suspect]
     Indication: ANALGESIC THERAPY

REACTIONS (1)
  - METHAEMOGLOBINAEMIA [None]
